FAERS Safety Report 7218551-3 (Version None)
Quarter: 2011Q1

REPORT INFORMATION
  Report Type: 
  Country: None (occurrence: None)
  Receive Date: 20110110
  Receipt Date: 20110103
  Transmission Date: 20110831
  Serious: Yes (Hospitalization)
  Sender: FDA-Public Use
  Company Number: US-JNJFOC-20110100824

PATIENT
  Age: 15 Year
  Sex: Female

DRUGS (5)
  1. INFLIXIMAB [Suspect]
     Route: 042
  2. INFLIXIMAB [Suspect]
     Indication: CROHN'S DISEASE
     Dosage: 2ND INFUSION
     Route: 042
  3. INFLIXIMAB [Suspect]
     Route: 042
  4. IMURAN [Concomitant]
  5. BENADRYL [Concomitant]

REACTIONS (6)
  - PYREXIA [None]
  - ABDOMINAL PAIN [None]
  - INFUSION RELATED REACTION [None]
  - URTICARIA [None]
  - BLOOD PRESSURE SYSTOLIC INCREASED [None]
  - TACHYCARDIA [None]
